FAERS Safety Report 25540479 (Version 5)
Quarter: 2025Q3

REPORT INFORMATION
  Report Type: Spontaneous
  Country: US (occurrence: US)
  Receive Date: 20250710
  Receipt Date: 20250930
  Transmission Date: 20251021
  Serious: No
  Sender: TRAVERE THERAPEUTICS
  Company Number: US-TRAVERE-2025TVT01019

PATIENT
  Age: 59 Year
  Sex: Male

DRUGS (3)
  1. FILSPARI [Suspect]
     Active Substance: SPARSENTAN
     Indication: IgA nephropathy
     Dosage: 200 MG, 2 TABLETS ONCE DAILY
     Route: 048
     Dates: start: 20250507
  2. FILSPARI [Suspect]
     Active Substance: SPARSENTAN
     Dosage: CUT 400 MG TABLET IN HALF
     Route: 048
  3. FILSPARI [Suspect]
     Active Substance: SPARSENTAN
     Route: 048

REACTIONS (3)
  - Peripheral swelling [None]
  - Swelling [None]
  - Product preparation error [Unknown]

NARRATIVE: CASE EVENT DATE: 20250601
